FAERS Safety Report 16385148 (Version 1)
Quarter: 2019Q2

REPORT INFORMATION
  Report Type: Spontaneous
  Country: FI (occurrence: FI)
  Receive Date: 20190603
  Receipt Date: 20190603
  Transmission Date: 20190711
  Serious: Yes (Life-Threatening)
  Sender: FDA-Public Use
  Company Number: FI-TEVA-2019-FI-1056963

PATIENT
  Age: 67 Year
  Sex: Male

DRUGS (5)
  1. MELATONIN VITABALANS [Concomitant]
     Dosage: 5,MG,DAILY
     Route: 048
  2. SOMAC [Concomitant]
     Active Substance: PANTOPRAZOLE SODIUM
     Dosage: 40,MG,DAILY
     Route: 048
  3. ALLONOL [Suspect]
     Active Substance: ALLOPURINOL
     Indication: GOUT
     Dosage: 100,MG,DAILY
     Route: 048
     Dates: start: 20190327, end: 20190507
  4. PAMOL [Concomitant]
     Active Substance: ACETAMINOPHEN
     Route: 048
  5. MIRTAZAPIN ORION [Concomitant]
     Active Substance: MIRTAZAPINE
     Dosage: 7.5,MG,DAILY
     Route: 048

REACTIONS (3)
  - Toxic epidermal necrolysis [Not Recovered/Not Resolved]
  - Septic shock [Not Recovered/Not Resolved]
  - Circulatory collapse [Not Recovered/Not Resolved]

NARRATIVE: CASE EVENT DATE: 20190507
